FAERS Safety Report 4374119-8 (Version None)
Quarter: 2004Q2

REPORT INFORMATION
  Report Type: 
  Country: None (occurrence: None)
  Receive Date: 20040607
  Receipt Date: 20040329
  Transmission Date: 20050107
  Serious: Yes (Disabling)
  Sender: FDA-Public Use
  Company Number: US-MERCK-0403USA02556

PATIENT
  Age: 79 Year
  Sex: Female
  Weight: 76 kg

DRUGS (6)
  1. [THERAPY UNSPECIFIED] [Concomitant]
     Indication: HYPERSENSITIVITY
     Route: 065
  2. COUGH, COLD, AND FLU THERAPIES (UNSPECIFIED) [Concomitant]
     Route: 065
  3. SINGULAIR [Suspect]
     Indication: RHINITIS ALLERGIC
     Route: 048
     Dates: start: 20030601, end: 20040201
  4. SINGULAIR [Suspect]
     Route: 048
     Dates: start: 20040101
  5. SINGULAIR [Suspect]
     Indication: FOOD ALLERGY
     Route: 048
     Dates: start: 20030601, end: 20040201
  6. SINGULAIR [Suspect]
     Route: 048
     Dates: start: 20040101

REACTIONS (7)
  - ARTHRALGIA [None]
  - EAR PAIN [None]
  - HIATUS HERNIA [None]
  - MYALGIA [None]
  - PAIN IN JAW [None]
  - PHARYNGOLARYNGEAL PAIN [None]
  - STOMACH DISCOMFORT [None]
